FAERS Safety Report 5859319-X (Version None)
Quarter: 2008Q3

REPORT INFORMATION
  Report Type: 
  Country: None (occurrence: None)
  Receive Date: 20080827
  Receipt Date: 20080822
  Transmission Date: 20090109
  Serious: Yes (Disabling)
  Sender: FDA-Public Use
  Company Number: US-ASTRAZENECA-2008UW17316

PATIENT
  Age: 48 Year
  Sex: Male

DRUGS (6)
  1. CRESTOR [Suspect]
     Dosage: 10 MG
     Route: 048
  2. IBUPROFEN [Concomitant]
  3. LISINOPRIL [Concomitant]
     Dosage: 20 MG
  4. ZETIA [Concomitant]
     Dosage: 10 MG
  5. TRICOR [Concomitant]
     Dosage: 145 MG
  6. FISH OIL [Concomitant]
     Dosage: 145 MG

REACTIONS (2)
  - MYALGIA [None]
  - TENDON RUPTURE [None]
